FAERS Safety Report 5581472-6 (Version None)
Quarter: 2008Q1

REPORT INFORMATION
  Report Type: 
  Country: None (occurrence: None)
  Receive Date: 20080103
  Receipt Date: 20080103
  Transmission Date: 20080703
  Serious: No
  Sender: FDA-Public Use
  Company Number: None

PATIENT
  Sex: Female
  Weight: 72.1219 kg

DRUGS (2)
  1. CHANTIX [Suspect]
     Indication: SMOKING CESSATION THERAPY
     Dosage: .5MG X 11 TABLETS  1 WEEK  PO;  1MG X 14 TABLETS  3 WEEKS  PO
     Route: 048
     Dates: start: 20071110, end: 20071127
  2. CHANTIX [Suspect]
     Indication: SMOKING CESSATION THERAPY
     Dosage: .5MG X 11 TABLETS  1 WEEK  PO;  1MG X 14 TABLETS  3 WEEKS  PO
     Route: 048
     Dates: start: 20071202, end: 20071204

REACTIONS (5)
  - DISTURBANCE IN ATTENTION [None]
  - IMPAIRED DRIVING ABILITY [None]
  - PRURITUS [None]
  - RASH MACULAR [None]
  - RASH PUSTULAR [None]
